FAERS Safety Report 17650049 (Version 2)
Quarter: 2021Q1

REPORT INFORMATION
  Report Type: Report from Study
  Country: US (occurrence: US)
  Receive Date: 20200409
  Receipt Date: 20210208
  Transmission Date: 20210419
  Serious: No
  Sender: FDA-Public Use
  Company Number: NVSC2020US093509

PATIENT
  Sex: Female

DRUGS (1)
  1. GILENYA [Suspect]
     Active Substance: FINGOLIMOD HYDROCHLORIDE
     Indication: MULTIPLE SCLEROSIS
     Dosage: 0.5 MG, QD
     Route: 048
     Dates: start: 20200125

REACTIONS (5)
  - Dizziness [Recovering/Resolving]
  - Gait deviation [Recovering/Resolving]
  - Muscle spasms [Unknown]
  - Sensitive skin [Unknown]
  - Dry eye [Not Recovered/Not Resolved]
